FAERS Safety Report 8650683 (Version 11)
Quarter: 2014Q2

REPORT INFORMATION
  Report Type: Spontaneous
  Country: US (occurrence: US)
  Receive Date: 20120705
  Receipt Date: 20140619
  Transmission Date: 20141212
  Serious: Yes (Other)
  Sender: FDA-Public Use
  Company Number: US-JNJFOC-20120516352

PATIENT
  Sex: Female

DRUGS (19)
  1. TOPAMAX [Suspect]
     Indication: MIGRAINE
     Route: 048
     Dates: start: 20060918, end: 20061218
  2. TOPAMAX [Suspect]
     Indication: CONVULSION
     Route: 048
     Dates: start: 20060918, end: 20061218
  3. TRAZODONE [Suspect]
     Indication: DEPRESSION
     Route: 048
  4. MIRTAZAPINE [Suspect]
     Indication: DEPRESSION
     Route: 048
  5. HYDROXYZINE [Suspect]
     Indication: ANXIETY
     Dosage: AS NECESSARY
     Route: 048
  6. ZOLOFT [Suspect]
     Indication: ANTIDEPRESSANT THERAPY
     Route: 048
  7. METFORMIN [Suspect]
     Indication: TYPE 2 DIABETES MELLITUS
     Route: 048
  8. EFFEXOR [Suspect]
     Indication: PRODUCT USED FOR UNKNOWN INDICATION
     Route: 048
  9. IBUPROFEN [Suspect]
     Route: 065
  10. IBUPROFEN [Suspect]
     Indication: PRODUCT USED FOR UNKNOWN INDICATION
     Route: 065
  11. COLACE [Suspect]
     Indication: PRODUCT USED FOR UNKNOWN INDICATION
     Route: 065
  12. OXYTOCIN [Suspect]
     Indication: PRODUCT USED FOR UNKNOWN INDICATION
     Route: 042
  13. BRETHINE [Suspect]
     Indication: PRODUCT USED FOR UNKNOWN INDICATION
     Route: 058
  14. BUPIVACAINE [Suspect]
     Indication: PRODUCT USED FOR UNKNOWN INDICATION
     Route: 008
  15. FENTANYL CITRATE [Suspect]
     Indication: PRODUCT USED FOR UNKNOWN INDICATION
     Route: 008
  16. OPTINATE [Concomitant]
     Indication: VITAMIN SUPPLEMENTATION
     Route: 065
  17. FOLIC ACID [Concomitant]
     Indication: VITAMIN SUPPLEMENTATION
     Route: 065
  18. PRENATAL VITAMIN [Concomitant]
     Route: 048
  19. FERROUS SULFATE [Concomitant]
     Route: 065

REACTIONS (5)
  - Exposure during pregnancy [Recovered/Resolved]
  - Oligohydramnios [Unknown]
  - Perineal injury [Unknown]
  - Epilepsy [Unknown]
  - Emotional disorder [Unknown]
